FAERS Safety Report 9621806 (Version 1)
Quarter: 2013Q4

REPORT INFORMATION
  Report Type: Spontaneous
  Country: US (occurrence: US)
  Receive Date: 20131015
  Receipt Date: 20131015
  Transmission Date: 20140711
  Serious: Yes (Other)
  Sender: FDA-Public Use
  Company Number: PHEH2013US021279

PATIENT
  Age: 62 Year
  Sex: Female

DRUGS (14)
  1. ZOMETA [Suspect]
     Dosage: 3.5 MG, UNK
     Route: 042
     Dates: start: 20130104
  2. REVLIMID [Suspect]
     Indication: PLASMA CELL MYELOMA
     Dosage: 25 MG, QD
     Route: 048
     Dates: start: 200910, end: 2012
  3. REVLIMID [Suspect]
     Dosage: 15 MG, 21 IN 28 D
     Route: 048
     Dates: start: 201212, end: 2013
  4. REVLIMID [Suspect]
     Dosage: 10 MG, 21 IN 28 D
     Route: 048
     Dates: start: 20130411
  5. TAMIFLU [Concomitant]
     Dosage: 75 MG, BID
     Dates: start: 20130206
  6. MUCINEX [Concomitant]
     Dosage: UNK UKN, UNK
  7. FAMVIR                                  /UNK/ [Concomitant]
     Dosage: 250 MG, BID
  8. BACTRIM DS [Concomitant]
     Dosage: BID ON M, W, F
  9. TOVIAZ [Concomitant]
     Dosage: 4 MG, UNK
  10. CALCIUM + VITAMIN D [Concomitant]
     Dosage: UNK UKN, BID
  11. LASIX [Concomitant]
     Dosage: 40 MG, QD
  12. KCL [Concomitant]
     Dosage: 10 MEQ, QD
  13. DECADRON                                /CAN/ [Concomitant]
     Dosage: 40 MG, 1 IN 1 WEEK
  14. VELCADE [Concomitant]
     Dosage: 2 MG, 1 IN 1 WEEK
     Route: 058

REACTIONS (4)
  - Influenza [Unknown]
  - Plasma cell myeloma [Unknown]
  - Malignant neoplasm progression [Unknown]
  - Renal failure [Not Recovered/Not Resolved]
